FAERS Safety Report 5792310-0 (Version None)
Quarter: 2008Q2

REPORT INFORMATION
  Report Type: 
  Country: None (occurrence: None)
  Receive Date: 20080626
  Receipt Date: 20080228
  Transmission Date: 20081010
  Serious: No
  Sender: FDA-Public Use
  Company Number: US-ASTRAZENECA-2008UW04211

PATIENT
  Age: 14 Year
  Sex: Male
  Weight: 56.7 kg

DRUGS (3)
  1. PULMICORT FLEXHALER [Suspect]
     Indication: ASTHMA
     Route: 055
     Dates: start: 20071201
  2. FLONASE [Concomitant]
  3. TOPICAL STEROID CREAM [Concomitant]
     Route: 061

REACTIONS (2)
  - PNEUMONIA [None]
  - VIRAL INFECTION [None]
